FAERS Safety Report 17525448 (Version 1)
Quarter: 2020Q1

REPORT INFORMATION
  Report Type: Spontaneous
  Country: ES (occurrence: ES)
  Receive Date: 20200310
  Receipt Date: 20200310
  Transmission Date: 20200409
  Serious: Yes (Hospitalization)
  Sender: FDA-Public Use
  Company Number: ES-BAUSCH-BL-2020-006945

PATIENT
  Age: 78 Year
  Sex: Male
  Weight: 76.5 kg

DRUGS (7)
  1. FLUIMUCIL [Concomitant]
     Active Substance: ACETYLCYSTEINE
     Indication: PRODUCT USED FOR UNKNOWN INDICATION
     Dosage: EFFERVESCENT TABLET; EVERY DAY FOR 20 DAYS
     Route: 048
     Dates: start: 20200120
  2. ATORVASTATINA [Concomitant]
     Active Substance: ATORVASTATIN
     Indication: TYPE IIA HYPERLIPIDAEMIA
     Dosage: 28 TABLETS
     Route: 048
     Dates: start: 20150622
  3. SINTROM UNO GEIGY [Concomitant]
     Indication: ATRIAL FIBRILLATION
     Dosage: 60 TABLETS
     Route: 048
     Dates: start: 20170308
  4. METFORMINE [Suspect]
     Active Substance: METFORMIN HYDROCHLORIDE
     Indication: TYPE 2 DIABETES MELLITUS
     Dosage: 50 TABLET; CHRONIC
     Route: 048
     Dates: start: 20180313, end: 20200122
  5. SEGURIL [Concomitant]
     Active Substance: FUROSEMIDE
     Indication: CARDIAC VALVE PROSTHESIS USER
     Dosage: 30 TABLETS
     Dates: start: 20190715
  6. PANTOPRAZOL [Concomitant]
     Active Substance: PANTOPRAZOLE SODIUM
     Indication: PROPHYLAXIS AGAINST GASTROINTESTINAL ULCER
     Dosage: 28 TABLETS
     Route: 048
     Dates: start: 20191104
  7. SEVIKAR HCT [Concomitant]
     Active Substance: AMLODIPINE BESYLATE\HYDROCHLOROTHIAZIDE\OLMESARTAN MEDOXOMIL
     Indication: HYPERTENSION
     Dosage: STRENGTH: 40/10/25MG; 28 TABLETS
     Route: 048
     Dates: start: 20150220

REACTIONS (1)
  - Metabolic acidosis [Recovered/Resolved]

NARRATIVE: CASE EVENT DATE: 20200122
